FAERS Safety Report 8037897-2 (Version None)
Quarter: 2012Q1

REPORT INFORMATION
  Report Type: 
  Country: None (occurrence: None)
  Receive Date: 20120111
  Receipt Date: 20120109
  Transmission Date: 20120608
  Serious: No
  Sender: FDA-Public Use
  Company Number: US-B.I. PHARMACEUTICALS,INC./RIDGEFIELD-2012-BP-00396BP

PATIENT
  Age: 77 Year
  Sex: Male

DRUGS (2)
  1. OXYGEN [Concomitant]
     Indication: CARDIAC FAILURE CONGESTIVE
     Dates: start: 20110501
  2. PRADAXA [Suspect]
     Indication: ATRIAL FIBRILLATION
     Dosage: 300 MG
     Route: 048
     Dates: start: 20110501

REACTIONS (4)
  - DYSPNOEA [None]
  - ABDOMINAL DISCOMFORT [None]
  - OXYGEN SATURATION DECREASED [None]
  - NAUSEA [None]
